FAERS Safety Report 8635076 (Version 3)
Quarter: 2012Q4

REPORT INFORMATION
  Report Type: 
  Country: US (occurrence: US)
  Receive Date: 20120626
  Receipt Date: 20121018
  Transmission Date: 20130627
  Serious: Yes (Hospitalization, Other)
  Sender: FDA-Public Use
  Company Number: US-UCBSA-059918

PATIENT
  Age: 66 None
  Sex: Male

DRUGS (14)
  1. VIMPAT [Suspect]
     Indication: CONVULSION
     Dosage: DOSE STRENGTH 150 MG; 50MG 3 TAB BID
  2. SEROQUEL [Suspect]
     Indication: PARANOIA
     Dosage: AT BEDTIME
     Dates: start: 201205
  3. KEPPRA [Concomitant]
     Dates: start: 20120521
  4. PROVENTIL HFA [Concomitant]
     Dosage: 2 PUFFS EVERY 4 HOURS
  5. BACTRIM [Concomitant]
     Dosage: ON MONDAY, WEDNESDAY AND FRIDAY
     Dates: start: 201205
  6. BACTRIM [Concomitant]
     Dosage: 100 MG TWO TABS EVERY OTHER DAY
  7. CLONAZEPAM [Concomitant]
     Indication: PARANOIA
     Dosage: 0.5MG 1 TAB DAILY
     Dates: start: 201205
  8. CLONAZEPAM [Concomitant]
     Indication: PARANOIA
     Dosage: 0.25MG 1 TAB DAILY
     Dates: start: 201206
  9. FLOMAX [Concomitant]
  10. SENOKOT S [Concomitant]
     Dosage: 1 TAB BID
  11. TEMODAR [Concomitant]
     Dosage: AT BEDTIME
  12. COMPAZINE [Concomitant]
     Indication: NAUSEA
  13. DECADRON [Concomitant]
     Route: 048
     Dates: start: 201205
  14. MORNIFLUMATE [Concomitant]
     Dates: start: 201205

REACTIONS (11)
  - Brain operation [Unknown]
  - Convulsion [Unknown]
  - Leukopenia [Unknown]
  - Delirium [Unknown]
  - Psychotic disorder [Unknown]
  - Encephalopathy [Unknown]
  - Pyrexia [Unknown]
  - Respiratory failure [Unknown]
  - Paranoia [Unknown]
  - Sedation [Recovered/Resolved]
  - Urinary retention [Unknown]
